FAERS Safety Report 12484569 (Version 3)
Quarter: 2016Q4

REPORT INFORMATION
  Report Type: Spontaneous
  Country: US (occurrence: US)
  Receive Date: 20160621
  Receipt Date: 20161213
  Transmission Date: 20170207
  Serious: Yes (Other)
  Sender: FDA-Public Use
  Company Number: US-JAZZ-JPI-P-025631

PATIENT
  Age: 35 Year
  Sex: Female
  Weight: 61 kg

DRUGS (9)
  1. ARMODAFINIL. [Concomitant]
     Active Substance: ARMODAFINIL
     Indication: PRODUCT USED FOR UNKNOWN INDICATION
     Dates: start: 2010
  2. DIVIGEL [Concomitant]
     Active Substance: ESTRADIOL
     Indication: NARCOLEPSY
     Dosage: 5 MG, SINGLE
  3. ESTRADIOL. [Concomitant]
     Active Substance: ESTRADIOL
     Indication: PRODUCT USED FOR UNKNOWN INDICATION
     Dosage: 0.1 %, SINGLE
     Dates: start: 201202
  4. DEXTROAMPHET SACCHARAT, AMPHET ASPARTATE, DEXTROAMPHET SULFATE AND AMPHET SULFAT [Concomitant]
     Active Substance: AMPHETAMINE ASPARTATE\AMPHETAMINE SULFATE\DEXTROAMPHETAMINE SACCHARATE\DEXTROAMPHETAMINE SULFATE
     Indication: NARCOLEPSY
  5. XYREM [Suspect]
     Active Substance: SODIUM OXYBATE
     Dosage: 4.25 G, FIRST DOSE
     Route: 048
     Dates: start: 201306
  6. XYREM [Suspect]
     Active Substance: SODIUM OXYBATE
     Dosage: 3.75 G, SECOND DOSE
     Route: 048
     Dates: start: 201306
  7. XYREM [Suspect]
     Active Substance: SODIUM OXYBATE
     Dosage: DOSE ADJUSTMENTS
     Route: 048
     Dates: start: 201002, end: 201306
  8. VITAMIN B12 [Concomitant]
     Active Substance: CYANOCOBALAMIN
     Indication: POSTOPERATIVE CARE
     Dosage: UNK
     Route: 051
  9. XYREM [Suspect]
     Active Substance: SODIUM OXYBATE
     Indication: NARCOLEPSY
     Dosage: 2.25 G, BID
     Route: 048
     Dates: start: 20100113, end: 201002

REACTIONS (11)
  - Ovarian cyst [Recovered/Resolved]
  - Ovarian remnant syndrome [Unknown]
  - Sciatica [Unknown]
  - Pain [Unknown]
  - Ovarian cyst [Recovered/Resolved]
  - Ear infection [Recovered/Resolved]
  - Insomnia [Unknown]
  - Oophorectomy [Recovered/Resolved]
  - Vertigo [Recovered/Resolved]
  - Muscle strain [Unknown]
  - Ovarian cyst [Unknown]

NARRATIVE: CASE EVENT DATE: 20120824
